FAERS Safety Report 9928390 (Version 1)
Quarter: 2014Q1

REPORT INFORMATION
  Report Type: Spontaneous
  Country: US (occurrence: None)
  Receive Date: 20140226
  Receipt Date: 20140226
  Transmission Date: 20141002
  Serious: Yes (Hospitalization)
  Sender: FDA-Public Use
  Company Number: None

PATIENT
  Age: 79 Year
  Sex: Male
  Weight: 89 kg

DRUGS (2)
  1. RIVAROXABAN 20 MG JANSSEN [Suspect]
     Indication: ATRIAL FIBRILLATION
     Dosage: 20 MG ONCE DAILY BY MOUTH
     Route: 048
     Dates: start: 20131020
  2. RIVAROXABAN 20 MG JANSSEN [Suspect]
     Indication: DEEP VEIN THROMBOSIS
     Dosage: 20 MG ONCE DAILY BY MOUTH
     Route: 048
     Dates: start: 20131020

REACTIONS (3)
  - Rectal haemorrhage [None]
  - Gastrointestinal haemorrhage [None]
  - Haemorrhagic anaemia [None]
